FAERS Safety Report 6816329-3 (Version None)
Quarter: 2010Q3

REPORT INFORMATION
  Report Type: 
  Country: None (occurrence: None)
  Receive Date: 20100705
  Receipt Date: 20100621
  Transmission Date: 20110219
  Serious: Yes (Hospitalization)
  Sender: FDA-Public Use
  Company Number: PHHY2010JP38963

PATIENT
  Age: 27 Year
  Sex: Male

DRUGS (2)
  1. DIOVAN [Suspect]
     Indication: HYPERTENSION
     Route: 048
  2. MAINTATE [Concomitant]
     Dosage: 2.5 MG
     Route: 048
     Dates: start: 20100401

REACTIONS (1)
  - BLOOD CREATINE PHOSPHOKINASE INCREASED [None]
